FAERS Safety Report 5059697-8 (Version None)
Quarter: 2006Q3

REPORT INFORMATION
  Report Type: 
  Country: None (occurrence: None)
  Receive Date: 20060724
  Receipt Date: 20060710
  Transmission Date: 20061208
  Serious: Yes (Disabling)
  Sender: FDA-Public Use
  Company Number: FR-ROCHE-454605

PATIENT

DRUGS (1)
  1. ROACCUTANE GEL [Suspect]
     Indication: DRUG USE FOR UNKNOWN INDICATION
     Dates: end: 20050630

REACTIONS (11)
  - CEREBELLAR HYPOPLASIA [None]
  - CONGENITAL CENTRAL NERVOUS SYSTEM ANOMALY [None]
  - CONGENITAL EYE DISORDER [None]
  - CONGENITAL IRIS ANOMALY [None]
  - DRUG EXPOSURE BEFORE PREGNANCY [None]
  - EAR MALFORMATION [None]
  - HEART DISEASE CONGENITAL [None]
  - MULTIPLE CONGENITAL ABNORMALITIES [None]
  - MYDRIASIS [None]
  - OLFACTORY NERVE DISORDER [None]
  - TWIN PREGNANCY [None]
